FAERS Safety Report 8970988 (Version 1)
Quarter: 2012Q4

REPORT INFORMATION
  Report Type: 
  Country: BR (occurrence: BR)
  Receive Date: 20121218
  Receipt Date: 20121218
  Transmission Date: 20130627
  Serious: Yes (Hospitalization)
  Sender: FDA-Public Use
  Company Number: BR-GENZYME-FABR-1002889

PATIENT
  Age: 20 Year
  Sex: Female

DRUGS (1)
  1. FABRAZYME [Suspect]
     Indication: FABRY^S DISEASE
     Dosage: 1 mg/kg, q2w
     Route: 042
     Dates: start: 20120905

REACTIONS (5)
  - Tuberculosis [Unknown]
  - Pulmonary cavitation [Unknown]
  - Pneumonia [Unknown]
  - Tachycardia [Unknown]
  - Pyrexia [Unknown]
